FAERS Safety Report 6055792-5 (Version None)
Quarter: 2009Q1

REPORT INFORMATION
  Report Type: 
  Country: None (occurrence: None)
  Receive Date: 20090128
  Receipt Date: 20090121
  Transmission Date: 20090719
  Serious: Yes (Other)
  Sender: FDA-Public Use
  Company Number: US-JNJFOC-20090105684

PATIENT
  Sex: Female
  Weight: 72.58 kg

DRUGS (5)
  1. TOPAMAX [Suspect]
     Route: 048
  2. TOPAMAX [Suspect]
     Indication: BIPOLAR DISORDER
     Route: 048
  3. AMBIEN [Concomitant]
     Indication: SLEEP DISORDER
  4. SULINDAC [Concomitant]
     Indication: ARTHRITIS
  5. LEVOTHYROXINE SODIUM [Concomitant]
     Indication: HYPOTHYROIDISM
     Route: 048

REACTIONS (3)
  - CARPAL TUNNEL SYNDROME [None]
  - PARAESTHESIA [None]
  - WRONG TECHNIQUE IN DRUG USAGE PROCESS [None]
